FAERS Safety Report 17861895 (Version 3)
Quarter: 2021Q2

REPORT INFORMATION
  Report Type: Spontaneous
  Country: US (occurrence: US)
  Receive Date: 20200604
  Receipt Date: 20210506
  Transmission Date: 20210717
  Serious: No
  Sender: FDA-Public Use
  Company Number: US-009507513-2006USA001135

PATIENT
  Age: 63 Year
  Sex: Female
  Weight: 121.4 kg

DRUGS (8)
  1. PRINIVIL [Suspect]
     Active Substance: LISINOPRIL
     Indication: ESSENTIAL HYPERTENSION
     Dosage: 40 MILLIGRAM, DAILY
     Route: 048
     Dates: start: 20120820
  2. PRINIVIL [Suspect]
     Active Substance: LISINOPRIL
     Indication: HERPES ZOSTER
     Dosage: 30 MILLIGRAM (1 TABLET), QD
     Route: 048
     Dates: end: 20141203
  3. PRINIVIL [Suspect]
     Active Substance: LISINOPRIL
     Indication: ESSENTIAL HYPERTENSION
  4. ZESTRIL [Suspect]
     Active Substance: LISINOPRIL
     Indication: ESSENTIAL HYPERTENSION
     Dosage: 40 MILLIGRAM, DAILY
     Route: 048
  5. PRINIVIL [Suspect]
     Active Substance: LISINOPRIL
     Indication: HERPES ZOSTER
     Dosage: 40 MILLIGRAM, DAILY
     Route: 048
     Dates: start: 20141203
  6. PRINIVIL [Suspect]
     Active Substance: LISINOPRIL
     Indication: HERPES ZOSTER
     Dosage: 20 MILLIGRAM TABLET, QD
     Route: 048
     Dates: start: 20130403
  7. ZYRTEC [Concomitant]
     Active Substance: CETIRIZINE HYDROCHLORIDE
     Dosage: 10 MILLIGRAM
  8. PRINIVIL [Suspect]
     Active Substance: LISINOPRIL
     Indication: ESSENTIAL HYPERTENSION

REACTIONS (3)
  - Product use in unapproved indication [Unknown]
  - Drug ineffective [Unknown]
  - Blood pressure decreased [Recovered/Resolved]

NARRATIVE: CASE EVENT DATE: 20130403
